FAERS Safety Report 5619068-X (Version None)
Quarter: 2008Q1

REPORT INFORMATION
  Report Type: 
  Country: None (occurrence: None)
  Receive Date: 20080207
  Receipt Date: 20080129
  Transmission Date: 20080703
  Serious: Yes (Hospitalization)
  Sender: FDA-Public Use
  Company Number: CA-PFIZER INC-2008009169

PATIENT
  Sex: Female
  Weight: 109 kg

DRUGS (1)
  1. SU-011,248 [Suspect]
     Indication: CERVIX CARCINOMA
     Route: 048

REACTIONS (1)
  - PELVIC PAIN [None]
